FAERS Safety Report 9341081 (Version 1)
Quarter: 2013Q2

REPORT INFORMATION
  Report Type: Spontaneous
  Country: FR (occurrence: FR)
  Receive Date: 20130610
  Receipt Date: 20130610
  Transmission Date: 20140414
  Serious: Yes (Life-Threatening, Hospitalization, Other)
  Sender: FDA-Public Use
  Company Number: FR-ASTRAZENECA-2013SE40542

PATIENT
  Age: 22465 Day
  Sex: Female

DRUGS (12)
  1. INEXIUM [Suspect]
     Route: 048
     Dates: start: 20130415
  2. ACTISKENAN [Suspect]
     Route: 048
     Dates: start: 20130417
  3. DOLIPRANE [Suspect]
     Route: 048
     Dates: start: 20130417
  4. TAZOCILLINE [Suspect]
     Indication: BACTERIAL SEPSIS
     Dosage: 4 G/ 500 MG PER DOSE, 1 DF THREE TIMES PER DAY
     Route: 042
     Dates: start: 20130416
  5. VENLAFAXINE [Suspect]
     Indication: DEPRESSION
     Route: 048
     Dates: start: 20130422
  6. LEXOMIL ROCHE [Suspect]
     Indication: ANXIETY
     Route: 048
     Dates: start: 20130415
  7. DUROGESIC [Suspect]
     Indication: PAIN
     Dosage: 25 MICROGRAM/HOUR (4.2 MG / 10.5 CM2), 1 DF PER DAY
     Route: 062
     Dates: start: 20130415
  8. CIFLOX [Suspect]
     Indication: BACTERIAL SEPSIS
     Route: 048
     Dates: start: 20130418
  9. METOPIMAZINE [Suspect]
     Route: 048
     Dates: start: 20130417
  10. SPASFON [Suspect]
     Route: 048
     Dates: start: 20130417
  11. FUNGIZONE [Suspect]
     Dates: start: 20130417
  12. INNOHEP [Suspect]
     Route: 058
     Dates: start: 20130418

REACTIONS (3)
  - Bacterial sepsis [Unknown]
  - Agranulocytosis [Not Recovered/Not Resolved]
  - Depression [Unknown]
